FAERS Safety Report 7771827-3 (Version None)
Quarter: 2011Q3

REPORT INFORMATION
  Report Type: 
  Country: None (occurrence: None)
  Receive Date: 20110922
  Receipt Date: 20110912
  Transmission Date: 20111222
  Serious: Yes (Other)
  Sender: FDA-Public Use
  Company Number: BR-US-EMD SERONO, INC.-7022772

PATIENT
  Sex: Female

DRUGS (4)
  1. REBIF [Suspect]
     Indication: RELAPSING-REMITTING MULTIPLE SCLEROSIS
     Route: 058
     Dates: start: 20060101
  2. PROPRANOLOL [Concomitant]
  3. GINKGO BILOBA [Concomitant]
  4. VASCULAR TREATMENT WITH COLLAGENASE [Concomitant]

REACTIONS (5)
  - HEADACHE [None]
  - ERYSIPELAS [None]
  - FATIGUE [None]
  - INJECTION SITE ERYTHEMA [None]
  - PAIN [None]
